FAERS Safety Report 9663875 (Version 2)
Quarter: 2013Q4

REPORT INFORMATION
  Report Type: Report from Study
  Country: JP (occurrence: JP)
  Receive Date: 20131101
  Receipt Date: 20131210
  Transmission Date: 20140711
  Serious: Yes (Death)
  Sender: FDA-Public Use
  Company Number: JP-PFIZER INC-2013308947

PATIENT
  Age: 61 Year
  Sex: Female
  Weight: 41 kg

DRUGS (4)
  1. REVATIO [Suspect]
     Indication: SCLERODERMA
     Dosage: 20 MG, 2X/DAY
     Route: 048
     Dates: start: 20110826, end: 20120529
  2. TRACLEER [Concomitant]
     Indication: SCLERODERMA
     Dosage: UNK
     Route: 048
     Dates: start: 20110729
  3. ENDOXAN [Concomitant]
     Indication: PULMONARY FIBROSIS
     Dosage: UNK
     Route: 048
     Dates: start: 20110601
  4. VASOLAN [Concomitant]
     Indication: ARRHYTHMIA
     Dosage: UNK
     Route: 048
     Dates: start: 20110729

REACTIONS (1)
  - Pulmonary fibrosis [Fatal]
